FAERS Safety Report 15132411 (Version 2)
Quarter: 2018Q3

REPORT INFORMATION
  Report Type: Report from Study
  Country: US (occurrence: US)
  Receive Date: 20180711
  Receipt Date: 20180823
  Transmission Date: 20181010
  Serious: Yes (Hospitalization)
  Sender: FDA-Public Use
  Company Number: US-BAXTER-2018BAX018991

PATIENT
  Age: 44 Year
  Sex: Female
  Weight: 158 kg

DRUGS (10)
  1. DOXORUBICIN [Suspect]
     Active Substance: DOXORUBICIN
     Indication: METASTASES TO LUNG
     Dosage: INFUSION; ON DAYS 1 AND 8 ON A 21 DAY CYCLE.
     Route: 042
     Dates: start: 20180521
  2. IFOSFAMIDE FOR INJECTION [Suspect]
     Active Substance: IFOSFAMIDE
     Indication: METASTASES TO LUNG
     Dosage: 2.5 DF, INFUSION; ON DAYS 1 TO 4 ON A 21 DAY CYCLE.
     Route: 042
     Dates: start: 20180521
  3. IFOSFAMIDE FOR INJECTION [Suspect]
     Active Substance: IFOSFAMIDE
     Indication: SMALL CELL CARCINOMA
     Dosage: INFUSION; LAST DOSE PRIOR TO SAE.
     Route: 042
     Dates: start: 20180615, end: 20180615
  4. MESNA FOR INJECTION 1 GRAM [Suspect]
     Active Substance: MESNA
     Indication: METASTASES TO LUNG
     Dosage: INFUSION; FOR FOUR DAYS ON A 21 DAY CYCLE.
     Route: 042
     Dates: start: 20180521
  5. OLARATUMAB [Suspect]
     Active Substance: OLARATUMAB
     Indication: METASTASES TO LUNG
     Dosage: INFUSION; ON DAYS 1 AND 8 ON A 21 DAY CYCLE.
     Route: 042
     Dates: start: 20180521
  6. DOXORUBICIN [Suspect]
     Active Substance: DOXORUBICIN
     Indication: SMALL CELL CARCINOMA
     Dosage: INFUSION; LAST DOSE PRIOR TO SAE.
     Route: 042
     Dates: start: 20180614
  7. OLARATUMAB [Suspect]
     Active Substance: OLARATUMAB
     Indication: SMALL CELL CARCINOMA
     Dosage: LAST DOSE PRIOR TO SAE.
     Route: 042
     Dates: start: 20180619
  8. POLYETHYLENE GLYCOL [Concomitant]
     Active Substance: POLYETHYLENE GLYCOLS
     Indication: PRODUCT USED FOR UNKNOWN INDICATION
     Route: 065
     Dates: start: 20180619
  9. MESNA FOR INJECTION 1 GRAM [Suspect]
     Active Substance: MESNA
     Indication: SMALL CELL CARCINOMA
     Dosage: INFUSION; LAST DOSE PRIOR TO SAE.
     Route: 042
     Dates: start: 20180615, end: 20180615
  10. NYSTATIN. [Concomitant]
     Active Substance: NYSTATIN
     Indication: PRODUCT USED FOR UNKNOWN INDICATION
     Route: 065
     Dates: start: 20180614

REACTIONS (3)
  - Haemorrhoids [Recovered/Resolved]
  - Pain [Recovered/Resolved]
  - Anaemia [Recovered/Resolved]

NARRATIVE: CASE EVENT DATE: 20180622
